FAERS Safety Report 25057817 (Version 1)
Quarter: 2025Q1

REPORT INFORMATION
  Report Type: Spontaneous
  Country: US (occurrence: None)
  Receive Date: 20250307
  Receipt Date: 20250307
  Transmission Date: 20250408
  Serious: No
  Sender: FDA-CTU
  Company Number: None

PATIENT
  Sex: Male

DRUGS (1)
  1. TREMFYA [Suspect]
     Active Substance: GUSELKUMAB
     Indication: Psoriasis
     Route: 042
     Dates: start: 202302

REACTIONS (4)
  - Psoriatic arthropathy [None]
  - Large intestine perforation [None]
  - Diverticulitis [None]
  - Therapy interrupted [None]
